FAERS Safety Report 9064548 (Version 2)
Quarter: 2013Q1

REPORT INFORMATION
  Report Type: Spontaneous
  Country: US (occurrence: US)
  Receive Date: 20130214
  Receipt Date: 20130306
  Transmission Date: 20140127
  Serious: Yes (Other)
  Sender: FDA-Public Use
  Company Number: US-BIOGENIDEC-2013BI013679

PATIENT
  Age: 41 Year
  Sex: Female

DRUGS (4)
  1. TYSABRI [Suspect]
     Indication: MULTIPLE SCLEROSIS
     Route: 042
     Dates: start: 20111214, end: 20121113
  2. CYMBALTA [Concomitant]
     Route: 048
  3. MORPHINE SULFATE ER [Concomitant]
     Route: 048
  4. NUCYNTA [Concomitant]

REACTIONS (1)
  - Toxicity to various agents [Recovered/Resolved]
